FAERS Safety Report 25654861 (Version 1)
Quarter: 2025Q3

REPORT INFORMATION
  Report Type: Report from Study
  Country: IN (occurrence: IN)
  Receive Date: 20250807
  Receipt Date: 20250807
  Transmission Date: 20251020
  Serious: Yes (Hospitalization, Other)
  Sender: RANBAXY
  Company Number: IN-SUN PHARMACEUTICAL INDUSTRIES LTD-2025R1-521308

PATIENT
  Age: 78 Year
  Sex: Male

DRUGS (1)
  1. METHOTREXATE [Suspect]
     Active Substance: METHOTREXATE
     Indication: Arthralgia
     Route: 065

REACTIONS (8)
  - Accidental overdose [Unknown]
  - Pancytopenia [Recovering/Resolving]
  - Mouth ulceration [Recovering/Resolving]
  - Aphthous ulcer [Recovering/Resolving]
  - Pyrexia [Recovering/Resolving]
  - Dysphagia [Recovering/Resolving]
  - Diarrhoea [Recovering/Resolving]
  - Melaena [Recovering/Resolving]
